FAERS Safety Report 6541050-9 (Version None)
Quarter: 2010Q1

REPORT INFORMATION
  Report Type: 
  Country: None (occurrence: None)
  Receive Date: 20100118
  Receipt Date: 20091225
  Transmission Date: 20100710
  Serious: Yes (Death)
  Sender: FDA-Public Use
  Company Number: US-BAYER-201011165GPV

PATIENT
  Age: 40 Year
  Sex: Female

DRUGS (8)
  1. BENZODIAZEPINE/ DIAZEPAM [Suspect]
  2. PROMETHAZINE [Suspect]
  3. DIPHENHYDRAMINE [Suspect]
  4. DOCUSATE [Suspect]
  5. OXYCODONE [Suspect]
  6. BENZODIAZEPINE [Suspect]
  7. CARISOPRODOL [Suspect]
  8. GABITRIL [Suspect]

REACTIONS (1)
  - DRUG TOXICITY [None]
